FAERS Safety Report 4359435-8 (Version None)
Quarter: 2004Q2

REPORT INFORMATION
  Report Type: 
  Country: None (occurrence: None)
  Receive Date: 20040512
  Receipt Date: 20040427
  Transmission Date: 20050107
  Serious: Yes (Other)
  Sender: FDA-Public Use
  Company Number: USA031049395

PATIENT
  Age: 64 Year
  Sex: Female
  Weight: 84 kg

DRUGS (2)
  1. HUMULIN N [Suspect]
     Indication: DIABETES MELLITUS
     Dosage: 30 U/DAY
     Dates: start: 19830101
  2. HUMULIN R [Suspect]
     Indication: DIABETES MELLITUS
     Dosage: 10 UG/DAY
     Dates: start: 19940101

REACTIONS (9)
  - BLINDNESS [None]
  - BLOOD GLUCOSE DECREASED [None]
  - CARDIAC FAILURE CONGESTIVE [None]
  - CATARACT [None]
  - EYE HAEMORRHAGE [None]
  - GLAUCOMA [None]
  - MYOCARDIAL INFARCTION [None]
  - VITREOUS FLOATERS [None]
  - WEIGHT FLUCTUATION [None]
